FAERS Safety Report 11857576 (Version 4)
Quarter: 2016Q1

REPORT INFORMATION
  Report Type: Report from Study
  Country: US (occurrence: US)
  Receive Date: 20151221
  Receipt Date: 20160302
  Transmission Date: 20160526
  Serious: Yes (Death, Hospitalization)
  Sender: FDA-Public Use
  Company Number: US-BIOGEN-2015BI00160873

PATIENT
  Age: 55 Year
  Sex: Female

DRUGS (1)
  1. TYSABRI [Suspect]
     Active Substance: NATALIZUMAB
     Indication: MULTIPLE SCLEROSIS
     Dosage: INFUSED OVER 1 HOUR
     Route: 042
     Dates: start: 20120106, end: 20151112

REACTIONS (5)
  - Chronic obstructive pulmonary disease [Unknown]
  - Respiratory failure [Fatal]
  - Small cell lung cancer metastatic [Fatal]
  - Respiratory distress [Unknown]
  - Pneumonia [Fatal]

NARRATIVE: CASE EVENT DATE: 20151117
